FAERS Safety Report 4496624-6 (Version None)
Quarter: 2004Q4

REPORT INFORMATION
  Report Type: 
  Country: None (occurrence: None)
  Receive Date: 20040923
  Receipt Date: 20040618
  Transmission Date: 20050328
  Serious: No
  Sender: FDA-Public Use
  Company Number: WAES 0406USA01902

PATIENT
  Sex: Female

DRUGS (2)
  1. INVANZ [Suspect]
  2. SULFAMETHOXAZOLE [Concomitant]

REACTIONS (1)
  - ARRHYTHMIA [None]
